FAERS Safety Report 7939910-7 (Version None)
Quarter: 2011Q4

REPORT INFORMATION
  Report Type: 
  Country: None (occurrence: None)
  Receive Date: 20111125
  Receipt Date: 20110916
  Transmission Date: 20120403
  Serious: No
  Sender: FDA-Public Use
  Company Number: US-BAYER-2011-091076

PATIENT
  Age: 97 Year
  Sex: Male
  Weight: 160 kg

DRUGS (6)
  1. POTASSIUM ACETATE [Concomitant]
  2. ONE A DAY MEN'S HEALTH FORMULA [Concomitant]
  3. NAPROXEN (ALEVE) [Suspect]
     Indication: PAIN
     Dosage: 2 DF, QD
     Route: 048
     Dates: start: 20110910, end: 20110916
  4. LASIX [Concomitant]
  5. ANTIHYPERTENSIVES [Concomitant]
  6. COREG [Concomitant]

REACTIONS (2)
  - DRY MOUTH [None]
  - SOMNOLENCE [None]
